FAERS Safety Report 11158588 (Version 1)
Quarter: 2015Q2

REPORT INFORMATION
  Report Type: Spontaneous
  Country: CL (occurrence: CL)
  Receive Date: 20150603
  Receipt Date: 20150603
  Transmission Date: 20150821
  Serious: Yes (Other)
  Sender: FDA-Public Use
  Company Number: CL-SUN PHARMACEUTICAL INDUSTRIES LTD-2015R1-98368

PATIENT
  Age: 75 Year
  Sex: Male

DRUGS (1)
  1. GEMFIBROZIL. [Suspect]
     Active Substance: GEMFIBROZIL
     Indication: PRODUCT USED FOR UNKNOWN INDICATION
     Dosage: UNK
     Route: 048

REACTIONS (1)
  - Drug eruption [Unknown]
